FAERS Safety Report 6781669-3 (Version None)
Quarter: 2010Q2

REPORT INFORMATION
  Report Type: 
  Country: None (occurrence: None)
  Receive Date: 20100621
  Receipt Date: 20100519
  Transmission Date: 20101027
  Serious: No
  Sender: FDA-Public Use
  Company Number: US-BAYER-201023985NA

PATIENT
  Age: 57 Year
  Sex: Male
  Weight: 113 kg

DRUGS (3)
  1. ULTRAVIST 240 [Suspect]
     Indication: UROGRAM
     Dosage: TOTAL DAILY DOSE: 200 ML  UNIT DOSE: 200 ML
     Route: 042
     Dates: start: 20100519, end: 20100519
  2. SYNTHROID [Concomitant]
  3. CIPRO [Concomitant]
     Indication: ABSCESS
     Route: 048

REACTIONS (1)
  - URTICARIA [None]
